FAERS Safety Report 4486557-3 (Version None)
Quarter: 2004Q4

REPORT INFORMATION
  Report Type: 
  Country: None (occurrence: None)
  Receive Date: 20041021
  Receipt Date: 20041007
  Transmission Date: 20050328
  Serious: Yes (Death, Hospitalization)
  Sender: FDA-Public Use
  Company Number: 2004237640PL

PATIENT
  Age: 63 Year
  Sex: Male
  Weight: 77 kg

DRUGS (5)
  1. SOLU-MEDROL [Suspect]
     Indication: KIDNEY TRANSPLANT REJECTION
  2. NEORAL VS TACROLIMUS () CAPSULE [Suspect]
     Indication: RENAL TRANSPLANT
     Dosage: 8 MG, QD, ORAL
     Route: 048
     Dates: start: 20040512, end: 20040702
  3. CELLCEPT [Suspect]
     Indication: RENAL TRANSPLANT
     Dosage: 500 MG, BID, ORAL
     Route: 048
     Dates: start: 20040511, end: 20040702
  4. PREDNISONE [Suspect]
     Indication: RENAL TRANSPLANT
     Dosage: 20 MG, QD, ORAL
     Route: 048
     Dates: start: 20040516
  5. ATG (ANTILYMPHOCYTE IMMUNOGLOBULIN (HORSE)) [Suspect]
     Indication: RENAL TRANSPLANT
     Dosage: 200 MG, QD, IV
     Route: 042
     Dates: start: 20040628, end: 20040630

REACTIONS (18)
  - ANXIETY [None]
  - CANDIDA SEPSIS [None]
  - DISORIENTATION [None]
  - DRUG EFFECT DECREASED [None]
  - DRUG RESISTANCE [None]
  - GENERAL PHYSICAL HEALTH DETERIORATION [None]
  - GRAFT LOSS [None]
  - HAEMODIALYSIS [None]
  - HALLUCINATION [None]
  - KIDNEY TRANSPLANT REJECTION [None]
  - LOSS OF CONSCIOUSNESS [None]
  - MULTI-ORGAN FAILURE [None]
  - OLIGURIA [None]
  - PERITONITIS [None]
  - PSYCHOTIC DISORDER [None]
  - RENAL FAILURE CHRONIC [None]
  - RESPIRATORY FAILURE [None]
  - SHOCK [None]
